FAERS Safety Report 5493235-0 (Version None)
Quarter: 2007Q4

REPORT INFORMATION
  Report Type: 
  Country: None (occurrence: None)
  Receive Date: 20071023
  Receipt Date: 20071010
  Transmission Date: 20080405
  Serious: Yes (Death, Hospitalization)
  Sender: FDA-Public Use
  Company Number: US-AMGEN-US214404

PATIENT
  Sex: Female

DRUGS (13)
  1. PANITUMUMAB [Suspect]
     Indication: COLORECTAL CANCER
     Route: 042
     Dates: start: 20070111, end: 20070222
  2. DECADRON [Suspect]
     Route: 048
  3. IRINOTECAN HCL [Concomitant]
     Route: 042
  4. FLUOROURACIL [Concomitant]
     Route: 042
     Dates: start: 20070224
  5. LEUCOVORIN [Concomitant]
     Route: 065
  6. ZOLOFT [Concomitant]
     Route: 048
  7. MARINOL [Concomitant]
     Route: 048
  8. OXYCODONE HCL [Concomitant]
  9. MORPHINE SULFATE [Concomitant]
     Route: 048
  10. SENNA [Concomitant]
     Route: 048
  11. COUMADIN [Concomitant]
     Route: 048
  12. LOVENOX [Concomitant]
     Route: 058
  13. HEPARIN [Concomitant]

REACTIONS (4)
  - FAILURE TO THRIVE [None]
  - MALIGNANT NEOPLASM PROGRESSION [None]
  - NEUTROPENIA [None]
  - RETROPERITONEAL HAEMORRHAGE [None]
